FAERS Safety Report 24988289 (Version 5)
Quarter: 2025Q3

REPORT INFORMATION
  Report Type: Spontaneous
  Country: US (occurrence: US)
  Receive Date: 20250220
  Receipt Date: 20250816
  Transmission Date: 20251020
  Serious: No
  Sender: ALEXION PHARMACEUTICALS
  Company Number: US-AstraZeneca-CH-00807699A

PATIENT
  Sex: Female

DRUGS (2)
  1. BREZTRI [Suspect]
     Active Substance: BUDESONIDE\FORMOTEROL\GLYCOPYRROLATE
     Route: 065
  2. DIAZEPAM [Concomitant]
     Active Substance: DIAZEPAM
     Indication: Panic attack
     Route: 065

REACTIONS (6)
  - Presyncope [Unknown]
  - Pollakiuria [Unknown]
  - Panic attack [Unknown]
  - Chest pain [Unknown]
  - Middle insomnia [Unknown]
  - Feeling abnormal [Unknown]
